FAERS Safety Report 17689076 (Version 3)
Quarter: 2020Q2

REPORT INFORMATION
  Report Type: Report from Study
  Country: None (occurrence: US)
  Receive Date: 20200421
  Receipt Date: 20200616
  Transmission Date: 20200714
  Serious: Yes (Other)
  Sender: FDA-Public Use
  Company Number: US-ABBVIE-20K-163-3369939-00

PATIENT
  Age: 72 Year
  Sex: Female

DRUGS (1)
  1. HUMIRA [Suspect]
     Active Substance: ADALIMUMAB
     Indication: RHEUMATOID ARTHRITIS
     Route: 058
     Dates: end: 202001

REACTIONS (11)
  - Pain [Recovered/Resolved]
  - Gait disturbance [Recovered/Resolved]
  - Post procedural complication [Unknown]
  - Dysstasia [Recovered/Resolved]
  - Pain [Not Recovered/Not Resolved]
  - Back pain [Unknown]
  - Therapeutic product effect incomplete [Unknown]
  - Spinal disorder [Unknown]
  - Spinal synovial cyst [Unknown]
  - Gait disturbance [Unknown]
  - Transient ischaemic attack [Unknown]

NARRATIVE: CASE EVENT DATE: 202002
